FAERS Safety Report 7591753-2 (Version None)
Quarter: 2011Q3

REPORT INFORMATION
  Report Type: 
  Country: None (occurrence: None)
  Receive Date: 20110706
  Receipt Date: 20110622
  Transmission Date: 20111222
  Serious: Yes (Other)
  Sender: FDA-Public Use
  Company Number: US-RANBAXY-2011US-45772

PATIENT

DRUGS (2)
  1. CIPROFLOXACIN [Suspect]
     Indication: ANIMAL BITE
     Dosage: UNK
     Route: 048
     Dates: start: 20110517
  2. CLINDAMYCIN [Suspect]
     Indication: ANIMAL BITE
     Dosage: 300 MG, UNK
     Route: 048
     Dates: start: 20110517

REACTIONS (8)
  - DYSPNOEA [None]
  - VOMITING [None]
  - BRAIN OEDEMA [None]
  - ABDOMINAL DISTENSION [None]
  - DIZZINESS [None]
  - SWOLLEN TONGUE [None]
  - VISION BLURRED [None]
  - RASH PRURITIC [None]
